FAERS Safety Report 5759683-6 (Version None)
Quarter: 2008Q2

REPORT INFORMATION
  Report Type: 
  Country: None (occurrence: None)
  Receive Date: 20080605
  Receipt Date: 20080523
  Transmission Date: 20081010
  Serious: Yes (Hospitalization, Congenital Anomaly)
  Sender: FDA-Public Use
  Company Number: A0681928A

PATIENT
  Sex: Male
  Weight: 4.1 kg

DRUGS (9)
  1. PAXIL [Suspect]
     Indication: ANXIETY
     Dosage: 40MG PER DAY
     Dates: start: 19980625, end: 20011231
  2. NIFEDIPINE [Concomitant]
  3. VITAMIN TAB [Concomitant]
  4. PERCOCET [Concomitant]
  5. STADOL [Concomitant]
     Dates: start: 20020128, end: 20020129
  6. TERBUTALINE SULFATE [Concomitant]
     Dates: start: 20020129, end: 20020129
  7. SYNTHROID [Concomitant]
     Dates: start: 20010301
  8. NORTRIPTYLINE HCL [Concomitant]
  9. INDERAL [Concomitant]

REACTIONS (30)
  - AORTIC STENOSIS [None]
  - AORTIC VALVE INCOMPETENCE [None]
  - ATELECTASIS [None]
  - ATRIAL SEPTAL DEFECT [None]
  - ATRIOVENTRICULAR BLOCK [None]
  - BUNDLE BRANCH BLOCK RIGHT [None]
  - CARDIAC FAILURE CONGESTIVE [None]
  - CARDIAC MURMUR [None]
  - CARDIOMEGALY [None]
  - CORONARY ARTERY DISEASE [None]
  - CYANOSIS [None]
  - DOUBLE OUTLET RIGHT VENTRICLE [None]
  - DRUG EXPOSURE DURING PREGNANCY [None]
  - ELECTROCARDIOGRAM ST SEGMENT DEPRESSION [None]
  - GENERALISED OEDEMA [None]
  - HEART DISEASE CONGENITAL [None]
  - HYPOTONIA NEONATAL [None]
  - PERICARDIAL EFFUSION [None]
  - PLEURAL EFFUSION [None]
  - PULMONARY OEDEMA [None]
  - PULMONARY VALVE STENOSIS [None]
  - QRS AXIS ABNORMAL [None]
  - RESPIRATORY DISTRESS [None]
  - RESPIRATORY FAILURE [None]
  - SKIN DISCOLOURATION [None]
  - TACHYPNOEA [None]
  - TRANSPOSITION OF THE GREAT VESSELS [None]
  - TRICUSPID VALVE INCOMPETENCE [None]
  - VENTRICULAR HYPERTROPHY [None]
  - VENTRICULAR SEPTAL DEFECT [None]
